FAERS Safety Report 15352284 (Version 1)
Quarter: 2018Q3

REPORT INFORMATION
  Report Type: Report from Study
  Country: CA (occurrence: CA)
  Receive Date: 20180905
  Receipt Date: 20180905
  Transmission Date: 20181010
  Serious: Yes (Other)
  Sender: FDA-Public Use
  Company Number: CA-BRISTOL-MYERS SQUIBB COMPANY-BMS-2017-063613

PATIENT
  Age: 40 Year
  Sex: Female

DRUGS (3)
  1. ABATACEPT [Suspect]
     Active Substance: ABATACEPT
     Indication: RHEUMATOID ARTHRITIS
     Dosage: 1000 MG, Q4WK
     Route: 042
     Dates: start: 20160819
  2. ABATACEPT [Suspect]
     Active Substance: ABATACEPT
     Indication: PRODUCT USED FOR UNKNOWN INDICATION
     Dosage: 1000 MG, Q4WK
     Route: 042
     Dates: start: 20170627
  3. ABATACEPT [Suspect]
     Active Substance: ABATACEPT
     Indication: PRODUCT USED FOR UNKNOWN INDICATION
     Dosage: 1000 MG, Q4WK
     Route: 042
     Dates: start: 20170712

REACTIONS (24)
  - Nasopharyngitis [Recovered/Resolved]
  - Cough [Recovering/Resolving]
  - Diarrhoea [Unknown]
  - Sinusitis [Unknown]
  - Abscess [Unknown]
  - Furuncle [Unknown]
  - Arthralgia [Not Recovered/Not Resolved]
  - Respiratory symptom [Unknown]
  - Anxiety [Unknown]
  - Insomnia [Unknown]
  - Infusion site haemorrhage [Recovering/Resolving]
  - Vomiting [Unknown]
  - Infection [Recovered/Resolved]
  - Pain [Not Recovered/Not Resolved]
  - Ear haemorrhage [Unknown]
  - Rheumatoid arthritis [Recovering/Resolving]
  - Pneumonia [Recovered/Resolved]
  - Influenza [Recovering/Resolving]
  - Nausea [Unknown]
  - Poor venous access [Unknown]
  - Injection site bruising [Unknown]
  - Phlebitis [Unknown]
  - Oropharyngeal pain [Unknown]
  - Pyrexia [Unknown]

NARRATIVE: CASE EVENT DATE: 20170806
